FAERS Safety Report 8484370-3 (Version None)
Quarter: 2012Q3

REPORT INFORMATION
  Report Type: 
  Country: None (occurrence: None)
  Receive Date: 20120703
  Receipt Date: 20120627
  Transmission Date: 20120928
  Serious: Yes (Other)
  Sender: FDA-Public Use
  Company Number: PHFR2012GB003740

PATIENT
  Age: 53 Year
  Sex: Female
  Weight: 84.8 kg

DRUGS (4)
  1. CARBAMAZEPINE [Suspect]
     Dosage: 500 MG, UNK
  2. LEVOTHYROXINE SODIUM [Suspect]
     Indication: HYPOTHYROIDISM
     Dosage: 50 UG, UNK
  3. LITHIUM CARBONATE [Suspect]
     Indication: AFFECTIVE DISORDER
     Dosage: 500 MG, UNK
  4. CANDESARTAN [Suspect]
     Indication: HYPERTENSION
     Dosage: 8 MG, UNK

REACTIONS (2)
  - TRANCE [None]
  - SEIZURE LIKE PHENOMENA [None]
